FAERS Safety Report 8328177-6 (Version None)
Quarter: 2012Q2

REPORT INFORMATION
  Report Type: 
  Country: None (occurrence: None)
  Receive Date: 20120502
  Receipt Date: 20120427
  Transmission Date: 20120825
  Serious: No
  Sender: FDA-Public Use
  Company Number: US-PFIZER INC-2012105395

PATIENT
  Sex: Male
  Weight: 109 kg

DRUGS (5)
  1. FENTANYL [Concomitant]
     Indication: PAIN
     Dosage: 100 MG, UNK
  2. HYDROCODONE [Concomitant]
     Dosage: 550 (UNKNOWN UNIT), 4X/DAY
  3. SUTENT [Suspect]
     Indication: RENAL CELL CARCINOMA STAGE IV
     Dosage: 50 MG,DAILY
     Dates: start: 20120401
  4. MORPHINE [Concomitant]
     Dosage: UNK
  5. RANITIDINE [Concomitant]
     Dosage: 300 MG, 2X/DAY

REACTIONS (1)
  - YELLOW SKIN [None]
